FAERS Safety Report 5724945-5 (Version None)
Quarter: 2008Q2

REPORT INFORMATION
  Report Type: 
  Country: None (occurrence: None)
  Receive Date: 20080430
  Receipt Date: 20080430
  Transmission Date: 20081010
  Serious: No
  Sender: FDA-Public Use
  Company Number: None

PATIENT
  Age: 57 Year
  Sex: Female
  Weight: 65.7716 kg

DRUGS (1)
  1. DURAGESIC-25 [Suspect]
     Indication: BACK PAIN
     Dosage: 25MCG/HR 72 HOURS TRANSDERMAL
     Route: 062
     Dates: start: 20071201, end: 20080401

REACTIONS (5)
  - DEPRESSION [None]
  - DYSPNOEA [None]
  - HYPERHIDROSIS [None]
  - PRURITUS [None]
  - URINARY TRACT DISORDER [None]
